FAERS Safety Report 8106433-4 (Version None)
Quarter: 2012Q1

REPORT INFORMATION
  Report Type: 
  Country: None (occurrence: None)
  Receive Date: 20120130
  Receipt Date: 20120119
  Transmission Date: 20120608
  Serious: Yes (Life-Threatening)
  Sender: FDA-Public Use
  Company Number: DKLU1076095

PATIENT
  Age: 50 Year
  Sex: Female

DRUGS (5)
  1. KEPPRA [Suspect]
     Indication: PRODUCT USED FOR UNKNOWN INDICATION
     Dosage: 500 MG, 2 IN 1 D, ORAL
     Route: 048
  2. ZYPREXA [Suspect]
     Indication: PRODUCT USED FOR UNKNOWN INDICATION
     Dosage: 5 MG, DAILY, ORAL
     Route: 048
  3. EFFEXOR [Suspect]
     Indication: PRODUCT USED FOR UNKNOWN INDICATION
     Dosage: 75 MG, DAILY
  4. ONFI [Suspect]
     Indication: PRODUCT USED FOR UNKNOWN INDICATION
     Dosage: 5 MG, 2 IN 1 D, ORAL
     Route: 048
  5. LEXOMIL (BROMAZEPAM) [Concomitant]

REACTIONS (9)
  - TREATMENT NONCOMPLIANCE [None]
  - CEREBELLAR SYNDROME [None]
  - OVERDOSE [None]
  - PNEUMONIA ASPIRATION [None]
  - DRUG DOSE OMISSION [None]
  - ANTICHOLINERGIC SYNDROME [None]
  - COMA [None]
  - PSYCHOMOTOR RETARDATION [None]
  - INAPPROPRIATE ANTIDIURETIC HORMONE SECRETION [None]
